FAERS Safety Report 18574596 (Version 1)
Quarter: 2020Q4

REPORT INFORMATION
  Report Type: Spontaneous
  Country: US (occurrence: US)
  Receive Date: 20201203
  Receipt Date: 20201203
  Transmission Date: 20210114
  Serious: Yes (Hospitalization)
  Sender: FDA-Public Use
  Company Number: US-MYLANLABS-2020M1098968

PATIENT
  Age: 3 Decade
  Sex: Female

DRUGS (4)
  1. LAMOTRIGINE. [Suspect]
     Active Substance: LAMOTRIGINE
     Dosage: 300 MILLIGRAM, QD
     Route: 065
  2. LAMOTRIGINE. [Suspect]
     Active Substance: LAMOTRIGINE
     Dosage: 50 MILLIGRAM, BID
     Route: 065
  3. LAMOTRIGINE. [Suspect]
     Active Substance: LAMOTRIGINE
     Indication: GENERALISED TONIC-CLONIC SEIZURE
     Dosage: STARTED AT UNKNOWN DOSE
     Route: 065
  4. LEVOTHYROXINE. [Concomitant]
     Active Substance: LEVOTHYROXINE
     Indication: HYPOTHYROIDISM
     Dosage: 25 MILLIGRAM, QD
     Route: 065

REACTIONS (2)
  - Drug ineffective [Unknown]
  - Mania [Recovering/Resolving]
